FAERS Safety Report 9192710 (Version 3)
Quarter: 2013Q2

REPORT INFORMATION
  Report Type: Spontaneous
  Country: JP (occurrence: JP)
  Receive Date: 20130327
  Receipt Date: 20130410
  Transmission Date: 20140414
  Serious: Yes (Hospitalization)
  Sender: FDA-Public Use
  Company Number: JP-GE HEALTHCARE MEDICAL DIAGNOSTICS-OMPQ-PR-1303S-0375

PATIENT
  Age: 65 Year
  Sex: Female

DRUGS (4)
  1. OMNIPAQUE [Suspect]
     Indication: CERVIX CARCINOMA
     Route: 042
     Dates: start: 20130314, end: 20130314
  2. OMNIPAQUE [Suspect]
     Indication: DIAGNOSTIC PROCEDURE
  3. ADONA [Concomitant]
     Indication: HAEMOSTASIS
     Route: 048
     Dates: start: 20130311
  4. TRANSAMIN [Concomitant]
     Indication: HAEMOSTASIS
     Route: 048
     Dates: start: 20130311

REACTIONS (1)
  - Anaphylactoid reaction [Recovered/Resolved]
